FAERS Safety Report 5686680-1 (Version None)
Quarter: 2008Q1

REPORT INFORMATION
  Report Type: 
  Country: None (occurrence: None)
  Receive Date: 20080328
  Receipt Date: 20070626
  Transmission Date: 20080703
  Serious: No
  Sender: FDA-Public Use
  Company Number: US-BAYER-US-2007-023839

PATIENT
  Age: 37 Year
  Sex: Female
  Weight: 58 kg

DRUGS (3)
  1. MIRENA [Suspect]
     Indication: CONTRACEPTION
     Route: 015
     Dates: start: 20070418
  2. NASAL SPRAY [Concomitant]
  3. ZYRTEC [Concomitant]

REACTIONS (3)
  - IUCD COMPLICATION [None]
  - MENOMETRORRHAGIA [None]
  - PAIN IN EXTREMITY [None]
